FAERS Safety Report 8965899 (Version 1)
Quarter: 2012Q4

REPORT INFORMATION
  Report Type: 
  Country: US (occurrence: US)
  Receive Date: 20121217
  Receipt Date: 20121217
  Transmission Date: 20130627
  Serious: No
  Sender: FDA-Public Use
  Company Number: US-ABBOTT-12P-163-0985392-00

PATIENT
  Sex: Female
  Weight: 99.88 kg

DRUGS (9)
  1. TRILIPIX [Suspect]
     Dates: start: 201208
  2. LASIX [Concomitant]
     Indication: HYPERTENSION
  3. FISH OIL [Concomitant]
     Indication: MINERAL SUPPLEMENTATION
  4. LEVOXYL [Concomitant]
     Indication: HYPOTHYROIDISM
  5. TAMOXIFEN [Concomitant]
     Indication: BREAST CANCER
  6. LOSARTAN [Concomitant]
     Indication: PRODUCT USED FOR UNKNOWN INDICATION
  7. POTASSIUM [Concomitant]
     Indication: MINERAL SUPPLEMENTATION
  8. VITAMIN D [Concomitant]
     Indication: MINERAL SUPPLEMENTATION
  9. METOPROLOL [Concomitant]
     Indication: HYPERTENSION

REACTIONS (1)
  - Fungal infection [Not Recovered/Not Resolved]
